FAERS Safety Report 5121746-6 (Version None)
Quarter: 2006Q4

REPORT INFORMATION
  Report Type: 
  Country: None (occurrence: None)
  Receive Date: 20061003
  Receipt Date: 20060915
  Transmission Date: 20070319
  Serious: Yes (Life-Threatening, Hospitalization)
  Sender: FDA-Public Use
  Company Number: DSA_28729_2006

PATIENT
  Age: 65 Year
  Sex: Female

DRUGS (11)
  1. ENALAPRIL MALEATE AND HYDROCHLOROTHIAZIDE [Suspect]
     Dosage: DF Q DAY; PO
     Route: 048
  2. SANDIMMUNE [Suspect]
     Dosage: 75 MG BID; PO
     Route: 048
  3. TRIMETHOPRIM [Suspect]
     Indication: URINARY TRACT INFECTION
     Dosage: 160 MG BID; PO
     Route: 048
     Dates: end: 20060902
  4. NORVASC [Concomitant]
  5. ALBYL-E [Concomitant]
  6. LESCOL [Concomitant]
  7. NOVORAPID [Concomitant]
  8. INSULATARD NPH HUMAN [Concomitant]
  9. MONOKET [Concomitant]
  10. SELO-ZOK [Concomitant]
  11. PREDNISOLON [Concomitant]

REACTIONS (6)
  - ATRIOVENTRICULAR BLOCK SECOND DEGREE [None]
  - ATRIOVENTRICULAR BLOCK THIRD DEGREE [None]
  - BLOOD CREATININE INCREASED [None]
  - DRUG INTERACTION [None]
  - HYPERKALAEMIA [None]
  - NODAL RHYTHM [None]
